FAERS Safety Report 10089027 (Version 4)
Quarter: 2014Q2

REPORT INFORMATION
  Report Type: Spontaneous
  Country: CH (occurrence: CH)
  Receive Date: 20140421
  Receipt Date: 20140506
  Transmission Date: 20141212
  Serious: Yes (Hospitalization, Other)
  Sender: FDA-Public Use
  Company Number: CH-ROCHE-1371468

PATIENT
  Age: 60 Year
  Sex: Female
  Weight: 88.3 kg

DRUGS (16)
  1. MABTHERA [Suspect]
     Indication: CHRONIC LYMPHOCYTIC LEUKAEMIA
     Route: 042
     Dates: start: 200709, end: 200711
  2. MABTHERA [Suspect]
     Route: 042
     Dates: start: 20090804, end: 20090929
  3. MABTHERA [Suspect]
     Route: 042
     Dates: start: 20091110
  4. OBINUTUZUMAB [Suspect]
     Indication: CHRONIC LYMPHOCYTIC LEUKAEMIA
     Route: 042
     Dates: start: 20140408, end: 20140408
  5. OBINUTUZUMAB [Suspect]
     Route: 042
     Dates: start: 20140409, end: 20140409
  6. OBINUTUZUMAB [Suspect]
     Route: 042
     Dates: start: 20140410, end: 20140410
  7. OBINUTUZUMAB [Suspect]
     Route: 042
     Dates: start: 20140417, end: 20140417
  8. OBINUTUZUMAB [Suspect]
     Route: 042
     Dates: start: 20140424, end: 20140424
  9. FLUDARABINE [Concomitant]
     Indication: CHRONIC LYMPHOCYTIC LEUKAEMIA
     Route: 065
     Dates: start: 200709, end: 200711
  10. FLUDARABINE [Concomitant]
     Route: 065
     Dates: start: 20090804, end: 20090929
  11. FLUDARABINE [Concomitant]
     Route: 065
     Dates: start: 2008
  12. CYCLOPHOSPHAMIDE [Concomitant]
     Indication: CHRONIC LYMPHOCYTIC LEUKAEMIA
     Route: 065
     Dates: start: 20090804, end: 20090929
  13. CYCLOPHOSPHAMIDE [Concomitant]
     Route: 065
     Dates: start: 2006
  14. BENDAMUSTINE [Concomitant]
     Indication: CHRONIC LYMPHOCYTIC LEUKAEMIA
     Route: 065
     Dates: start: 20091110, end: 20100308
  15. RIBOMUSTIN [Concomitant]
     Indication: CHRONIC LYMPHOCYTIC LEUKAEMIA
     Route: 065
     Dates: start: 20100406
  16. LEUKERAN [Concomitant]

REACTIONS (9)
  - Renal pain [Recovering/Resolving]
  - Blood pressure increased [Recovering/Resolving]
  - Pyrexia [Unknown]
  - Anaemia [Recovered/Resolved]
  - Neutropenia [Recovered/Resolved]
  - Thrombocytopenia [Recovered/Resolved]
  - Tumour lysis syndrome [Recovered/Resolved]
  - Mental disorder [Recovered/Resolved]
  - Disease progression [Unknown]
